FAERS Safety Report 8165362-0 (Version None)
Quarter: 2012Q1

REPORT INFORMATION
  Report Type: 
  Country: None (occurrence: None)
  Receive Date: 20120227
  Receipt Date: 20110902
  Transmission Date: 20120608
  Serious: No
  Sender: FDA-Public Use
  Company Number: US-MYLANLABS-2011S1018537

PATIENT
  Age: 69 Year
  Sex: Female
  Weight: 81.65 kg

DRUGS (5)
  1. METFORMIN HCL [Suspect]
     Indication: BLOOD GLUCOSE INCREASED
     Route: 048
     Dates: start: 20110607, end: 20110701
  2. LEVOTHYROXINE SODIUM [Concomitant]
  3. VITAMIN TAB [Concomitant]
  4. LIPITOR [Concomitant]
  5. CELEXA [Concomitant]

REACTIONS (3)
  - ANGER [None]
  - ABDOMINAL PAIN [None]
  - AGITATION [None]
